FAERS Safety Report 11413789 (Version 2)
Quarter: 2015Q3

REPORT INFORMATION
  Report Type: Spontaneous
  Country: DE (occurrence: DE)
  Receive Date: 20150824
  Receipt Date: 20150915
  Transmission Date: 20151125
  Serious: No
  Sender: FDA-Public Use
  Company Number: DE-LEO PHARMA-236460

PATIENT
  Age: 86 Year
  Sex: Female
  Weight: 65 kg

DRUGS (1)
  1. PICATO [Suspect]
     Active Substance: INGENOL MEBUTATE
     Indication: ACTINIC KERATOSIS
     Dates: start: 20150724, end: 20150727

REACTIONS (5)
  - Eye swelling [Recovering/Resolving]
  - Visual impairment [Recovering/Resolving]
  - Incorrect drug administration duration [Unknown]
  - Application site swelling [Recovering/Resolving]
  - Drug administered at inappropriate site [Unknown]

NARRATIVE: CASE EVENT DATE: 20150724
